FAERS Safety Report 4783499-0 (Version None)
Quarter: 2005Q3

REPORT INFORMATION
  Report Type: 
  Country: None (occurrence: None)
  Receive Date: 20050928
  Receipt Date: 20050928
  Transmission Date: 20060218
  Serious: Yes (Life-Threatening, Hospitalization)
  Sender: FDA-Public Use
  Company Number: None

PATIENT
  Age: 24 Year
  Sex: Male
  Weight: 77.1115 kg

DRUGS (1)
  1. OXYCONTIN [Suspect]

REACTIONS (5)
  - DRUG ABUSER [None]
  - LEGAL PROBLEM [None]
  - MEDICATION ERROR [None]
  - NIGHTMARE [None]
  - OVERDOSE [None]
